FAERS Safety Report 5821078-4 (Version None)
Quarter: 2008Q3

REPORT INFORMATION
  Report Type: 
  Country: None (occurrence: None)
  Receive Date: 20080724
  Receipt Date: 20080708
  Transmission Date: 20090109
  Serious: No
  Sender: FDA-Public Use
  Company Number: US-BAYER-200827458NA

PATIENT
  Age: 24 Year
  Sex: Female

DRUGS (2)
  1. MIRENA [Suspect]
     Indication: CONTRACEPTION
     Route: 015
     Dates: start: 20080612, end: 20080708
  2. YASMIN [Suspect]
     Indication: CONTRACEPTION
     Route: 048
     Dates: end: 20080601

REACTIONS (3)
  - IUCD COMPLICATION [None]
  - NO ADVERSE EVENT [None]
  - PREGNANCY ON ORAL CONTRACEPTIVE [None]
